APPROVED DRUG PRODUCT: CYCLOPHOSPHAMIDE
Active Ingredient: CYCLOPHOSPHAMIDE
Strength: 500MG/VIAL
Dosage Form/Route: INJECTABLE;INJECTION
Application: A040745 | Product #001 | TE Code: AP
Applicant: BAXTER HEALTHCARE CORP
Approved: May 21, 2008 | RLD: No | RS: Yes | Type: RX